FAERS Safety Report 10245101 (Version 1)
Quarter: 2014Q2

REPORT INFORMATION
  Report Type: Spontaneous
  Country: US (occurrence: US)
  Receive Date: 20140618
  Receipt Date: 20140618
  Transmission Date: 20141212
  Serious: No
  Sender: FDA-Public Use
  Company Number: US-ELI_LILLY_AND_COMPANY-US201406002909

PATIENT
  Sex: Female

DRUGS (8)
  1. ADCIRCA [Suspect]
     Indication: PULMONARY HYPERTENSION
     Dosage: 40 MG, QD
  2. LOSARTAN [Concomitant]
     Dosage: 100 MG, QD
  3. CARVEDILOL [Concomitant]
     Dosage: 12 MG, BID
  4. FUROSEMIDE [Concomitant]
     Dosage: 20 MG, UNK
  5. GLYBURIDE [Concomitant]
     Dosage: 4 MG, BID
  6. JANUVIA [Concomitant]
     Dosage: 100 MG, QD
  7. PREMARIN [Concomitant]
  8. ASPIRIN [Concomitant]

REACTIONS (2)
  - Macular degeneration [Not Recovered/Not Resolved]
  - Fatigue [Not Recovered/Not Resolved]
